FAERS Safety Report 5114413-6 (Version None)
Quarter: 2006Q3

REPORT INFORMATION
  Report Type: 
  Country: None (occurrence: None)
  Receive Date: 20060731
  Receipt Date: 20060605
  Transmission Date: 20061208
  Serious: No
  Sender: FDA-Public Use
  Company Number: 2006PV015036

PATIENT
  Age: 68 Year
  Sex: Female
  Weight: 78.4723 kg

DRUGS (6)
  1. BYETTA [Suspect]
     Indication: WEIGHT DECREASED
     Dosage: 5 MCG;BID;SC
     Route: 058
     Dates: start: 20060504
  2. NEXIUM [Concomitant]
  3. CARDURA [Concomitant]
  4. TENORMIN [Concomitant]
  5. AVAPRO [Concomitant]
  6. ALEVE [Concomitant]

REACTIONS (7)
  - BLOOD GLUCOSE INCREASED [None]
  - BLOOD PRESSURE INCREASED [None]
  - CONSTIPATION [None]
  - DRUG INEFFECTIVE FOR UNAPPROVED INDICATION [None]
  - DRY MOUTH [None]
  - FLATULENCE [None]
  - URINARY TRACT INFECTION [None]
